FAERS Safety Report 9524790 (Version 1)
Quarter: 2013Q3

REPORT INFORMATION
  Report Type: Spontaneous
  Country: ZA (occurrence: None)
  Receive Date: 20130912
  Receipt Date: 20130912
  Transmission Date: 20140515
  Serious: Yes (Death, Hospitalization)
  Sender: FDA-Public Use
  Company Number: 1889067

PATIENT
  Sex: Male

DRUGS (9)
  1. DEXMEDETOMIDINE HYDROCHLORIDE [Suspect]
     Indication: SEDATION
     Dates: start: 20130504, end: 20130506
  2. BUSCOPAN [Concomitant]
  3. SPIRACTIN /00006201/ [Concomitant]
  4. NEXIUM [Concomitant]
  5. URISPAS [Concomitant]
  6. DOBUTAMINE [Concomitant]
  7. INTEGRILLIN [Concomitant]
  8. FUROSEMIDE [Concomitant]
  9. LASIX /00032601/ [Concomitant]

REACTIONS (1)
  - Atrial fibrillation [None]
